FAERS Safety Report 5953277-5 (Version None)
Quarter: 2008Q4

REPORT INFORMATION
  Report Type: 
  Country: None (occurrence: None)
  Receive Date: 20081114
  Receipt Date: 20081107
  Transmission Date: 20090506
  Serious: Yes (Hospitalization)
  Sender: FDA-Public Use
  Company Number: PHEH2008US10048

PATIENT
  Sex: Female

DRUGS (3)
  1. DIOVAN [Suspect]
     Dosage: UNK
  2. DIOVAN HCT [Suspect]
     Dosage: ^INCREASED THE HCT^
  3. HYDROCHLOROTHIAZIDE [Suspect]
     Dosage: UNK

REACTIONS (4)
  - ASTHMA EXERCISE INDUCED [None]
  - DYSPNOEA [None]
  - GAIT DISTURBANCE [None]
  - HYPERTHYROIDISM [None]
